FAERS Safety Report 5486091-8 (Version None)
Quarter: 2007Q4

REPORT INFORMATION
  Report Type: 
  Country: None (occurrence: None)
  Receive Date: 20071015
  Receipt Date: 20071003
  Transmission Date: 20080405
  Serious: Yes (Other)
  Sender: FDA-Public Use
  Company Number: US-PFIZER INC-2007084385

PATIENT
  Sex: Female
  Weight: 88.636 kg

DRUGS (1)
  1. CHANTIX [Suspect]
     Indication: SMOKING CESSATION THERAPY
     Dates: start: 20070101, end: 20070901

REACTIONS (6)
  - ABNORMAL DREAMS [None]
  - AGITATION [None]
  - DEPRESSION [None]
  - HEADACHE [None]
  - NIGHTMARE [None]
  - PANIC ATTACK [None]
